FAERS Safety Report 20171716 (Version 2)
Quarter: 2021Q4

REPORT INFORMATION
  Report Type: Spontaneous
  Country: RO (occurrence: None)
  Receive Date: 20211210
  Receipt Date: 20211228
  Transmission Date: 20220303
  Serious: Yes (Death, Hospitalization)
  Sender: FDA-Public Use
  Company Number: 2021A853601

PATIENT
  Age: 71 Year
  Sex: Female

DRUGS (1)
  1. FASENRA [Suspect]
     Active Substance: BENRALIZUMAB
     Indication: Asthma
     Route: 058
     Dates: start: 202106, end: 20211008

REACTIONS (2)
  - COVID-19 [Fatal]
  - Respiratory failure [Unknown]

NARRATIVE: CASE EVENT DATE: 20211011
